FAERS Safety Report 4627761-0 (Version None)
Quarter: 2005Q2

REPORT INFORMATION
  Report Type: 
  Country: None (occurrence: None)
  Receive Date: 20050401
  Receipt Date: 20050317
  Transmission Date: 20051028
  Serious: Yes (Hospitalization)
  Sender: FDA-Public Use
  Company Number: 2005-0008171

PATIENT
  Age: 37 Year
  Sex: Male

DRUGS (3)
  1. VIREAD [Suspect]
     Indication: HIV INFECTION
     Dosage: 300 MG, 1 IN 1 D, ORAL
     Route: 048
     Dates: start: 20041115, end: 20050118
  2. EMTRIVA [Suspect]
     Dates: start: 20041115, end: 20050118
  3. COMBIVIR [Concomitant]

REACTIONS (3)
  - MACULOPATHY [None]
  - SCOTOMA [None]
  - VISUAL ACUITY REDUCED [None]
